FAERS Safety Report 11950140 (Version 1)
Quarter: 2016Q1

REPORT INFORMATION
  Report Type: Other
  Country: US (occurrence: US)
  Receive Date: 20160125
  Receipt Date: 20160125
  Transmission Date: 20160526
  Serious: Yes (Death)
  Sender: FDA-Public Use
  Company Number: US-LEHIGH_VALLEY-USA-POI0580201600063

PATIENT
  Age: 43 Year
  Sex: Female

DRUGS (11)
  1. DOXYLAMINE [Suspect]
     Active Substance: DOXYLAMINE
     Dates: end: 2014
  2. OXYCODONE HCL CAPSULES [Suspect]
     Active Substance: OXYCODONE HYDROCHLORIDE
     Dates: end: 2014
  3. CLONIDINE. [Suspect]
     Active Substance: CLONIDINE
     Dates: end: 2014
  4. ACETAMINOPHEN AND CODEINE [Suspect]
     Active Substance: ACETAMINOPHEN\CODEINE PHOSPHATE
     Dates: end: 2014
  5. ACETAMINOPHEN WITH HYDROCODONE [Suspect]
     Active Substance: ACETAMINOPHEN\HYDROCODONE
     Dates: end: 2014
  6. ACETAMINOPHEN WITH OXYCODONE [Suspect]
     Active Substance: ACETAMINOPHEN\OXYCODONE HYDROCHLORIDE
     Dates: end: 2014
  7. VENLAFAXINE [Suspect]
     Active Substance: VENLAFAXINE HYDROCHLORIDE
     Dates: end: 2014
  8. PROPRANOLOL [Suspect]
     Active Substance: PROPRANOLOL\PROPRANOLOL HYDROCHLORIDE
     Dates: end: 2014
  9. ZOLPIDEM [Suspect]
     Active Substance: ZOLPIDEM\ZOLPIDEM TARTRATE
     Dates: end: 2014
  10. ALPRAZOLAM. [Suspect]
     Active Substance: ALPRAZOLAM
     Dates: end: 2014
  11. TRAMADOL. [Suspect]
     Active Substance: TRAMADOL
     Dates: end: 2014

REACTIONS (3)
  - Respiratory arrest [Fatal]
  - Cardiac arrest [Fatal]
  - Completed suicide [Fatal]

NARRATIVE: CASE EVENT DATE: 2014
